FAERS Safety Report 9164682 (Version 1)
Quarter: 2013Q1

REPORT INFORMATION
  Report Type: Spontaneous
  Country: GB (occurrence: GB)
  Receive Date: 20130315
  Receipt Date: 20130315
  Transmission Date: 20140127
  Serious: Yes (Disabling, Congenital Anomaly)
  Sender: FDA-Public Use
  Company Number: GB-ACCORD-016784

PATIENT
  Age: 51 Year
  Sex: Female

DRUGS (4)
  1. CHLORPHENIRAMINE [Concomitant]
     Indication: HYPERSENSITIVITY
     Route: 048
     Dates: start: 201301
  2. LETROZOLE [Suspect]
     Indication: PRODUCT USED FOR UNKNOWN INDICATION
     Route: 048
     Dates: start: 20121217
  3. HERCEPTIN [Suspect]
     Indication: HER-2 POSITIVE BREAST CANCER
     Route: 042
     Dates: start: 20121217
  4. PREDNISONE [Concomitant]

REACTIONS (2)
  - Congenital anomaly [Not Recovered/Not Resolved]
  - Condition aggravated [Not Recovered/Not Resolved]
